FAERS Safety Report 4828178-6 (Version None)
Quarter: 2005Q4

REPORT INFORMATION
  Report Type: 
  Country: None (occurrence: None)
  Receive Date: 20051115
  Receipt Date: 20051103
  Transmission Date: 20060501
  Serious: Yes (Death)
  Sender: FDA-Public Use
  Company Number: US-GLAXOSMITHKLINE-A0581275A

PATIENT
  Sex: Female

DRUGS (3)
  1. AVANDIA [Suspect]
     Route: 065
     Dates: start: 20000101, end: 20040201
  2. INSULIN [Concomitant]
  3. ACTOS [Concomitant]

REACTIONS (4)
  - FLUID RETENTION [None]
  - HEPATIC FAILURE [None]
  - RENAL FAILURE [None]
  - WEIGHT INCREASED [None]
